FAERS Safety Report 24696977 (Version 3)
Quarter: 2025Q1

REPORT INFORMATION
  Report Type: Spontaneous
  Country: US (occurrence: US)
  Receive Date: 20241204
  Receipt Date: 20250107
  Transmission Date: 20250409
  Serious: No
  Sender: PFIZER
  Company Number: US-PFIZER INC-202400311412

PATIENT
  Age: 9 Year
  Sex: Male
  Weight: 36.281 kg

DRUGS (1)
  1. GENOTROPIN [Suspect]
     Active Substance: SOMATROPIN
     Dosage: 0.6 MG, 1X/DAY
     Route: 058
     Dates: start: 2022

REACTIONS (6)
  - Drug dose omission by device [Unknown]
  - Device physical property issue [Unknown]
  - Device delivery system issue [Unknown]
  - Device information output issue [Unknown]
  - Device physical property issue [Unknown]
  - Device leakage [Unknown]
